FAERS Safety Report 5220567-3 (Version None)
Quarter: 2007Q1

REPORT INFORMATION
  Report Type: 
  Country: None (occurrence: None)
  Receive Date: 20070126
  Receipt Date: 20070115
  Transmission Date: 20070707
  Serious: Yes (Hospitalization)
  Sender: FDA-Public Use
  Company Number: PHRM2007FR00519

PATIENT
  Age: 72 Year
  Sex: Female

DRUGS (6)
  1. ALDACTAZINE [Suspect]
     Indication: ESSENTIAL HYPERTENSION
     Route: 048
     Dates: end: 20061118
  2. RISPERDAL [Suspect]
     Indication: PSYCHOTIC DISORDER
     Dosage: 2 MG, BID
     Route: 048
     Dates: end: 20061118
  3. HYZAAR [Suspect]
     Indication: ESSENTIAL HYPERTENSION
     Route: 048
     Dates: end: 20061118
  4. ESCITALOPRAM OXALATE [Suspect]
     Indication: DYSTHYMIC DISORDER
     Route: 048
     Dates: end: 20061118
  5. CELECTOL [Concomitant]
     Indication: ESSENTIAL HYPERTENSION
     Route: 048
  6. TEGRETOL [Suspect]
     Indication: EPILEPSY
     Route: 048
     Dates: end: 20061118

REACTIONS (3)
  - BLOOD SODIUM DECREASED [None]
  - FALL [None]
  - HYPONATRAEMIA [None]
